FAERS Safety Report 16167658 (Version 2)
Quarter: 2019Q2

REPORT INFORMATION
  Report Type: Report from Study
  Country: None (occurrence: US)
  Receive Date: 20190408
  Receipt Date: 20190424
  Transmission Date: 20190711
  Serious: Yes (Hospitalization)
  Sender: FDA-Public Use
  Company Number: US-ABBVIE-19K-163-2732856-00

PATIENT
  Age: 14 Year
  Sex: Female

DRUGS (1)
  1. HUMIRA [Suspect]
     Active Substance: ADALIMUMAB
     Indication: JUVENILE IDIOPATHIC ARTHRITIS
     Route: 058
     Dates: start: 20190131, end: 20190410

REACTIONS (6)
  - Abdominal pain upper [Unknown]
  - Drug ineffective [Not Recovered/Not Resolved]
  - Hypophagia [Unknown]
  - Uveitis [Not Recovered/Not Resolved]
  - Nausea [Unknown]
  - Abdominal pain [Unknown]

NARRATIVE: CASE EVENT DATE: 201903
